FAERS Safety Report 9103797 (Version 1)
Quarter: 2013Q1

REPORT INFORMATION
  Report Type: Other
  Country: GB (occurrence: GB)
  Receive Date: 20130219
  Receipt Date: 20130219
  Transmission Date: 20140127
  Serious: Yes (Disabling)
  Sender: FDA-Public Use
  Company Number: GB-WATSON-2013-02377

PATIENT
  Sex: Female

DRUGS (1)
  1. AMLODIPINE (UNKNOWN) [Suspect]
     Indication: HYPERTENSION
     Dosage: 5 MG, DAILY
     Route: 048
     Dates: start: 20130108, end: 20130112

REACTIONS (5)
  - Chills [Recovering/Resolving]
  - Asthenia [Recovering/Resolving]
  - Pollakiuria [Recovering/Resolving]
  - Feeling abnormal [Recovering/Resolving]
  - Disorientation [Recovering/Resolving]
